FAERS Safety Report 4675899-4 (Version None)
Quarter: 2005Q2

REPORT INFORMATION
  Report Type: 
  Country: None (occurrence: None)
  Receive Date: 20050527
  Receipt Date: 20050517
  Transmission Date: 20051028
  Serious: Yes (Death)
  Sender: FDA-Public Use
  Company Number: JP-JNJFOC-20050502678

PATIENT
  Sex: Female
  Weight: 53 kg

DRUGS (10)
  1. REMICADE [Suspect]
     Route: 042
  2. REMICADE [Suspect]
     Route: 042
  3. REMICADE [Suspect]
     Indication: RHEUMATOID ARTHRITIS
     Route: 042
  4. RHEUMATREX [Suspect]
     Route: 049
  5. RHEUMATREX [Suspect]
     Indication: RHEUMATOID ARTHRITIS
     Route: 049
  6. IMURAN [Suspect]
     Indication: RHEUMATOID ARTHRITIS
     Route: 049
     Dates: start: 19980101, end: 20050101
  7. PREDNISOLONE [Suspect]
     Indication: RHEUMATOID ARTHRITIS
     Route: 049
  8. CLINORIL [Concomitant]
     Indication: RHEUMATOID ARTHRITIS
     Route: 049
  9. FERROMIA [Concomitant]
     Route: 049
  10. SELTOUCH [Concomitant]
     Route: 050

REACTIONS (4)
  - CARDIAC ARREST [None]
  - LOSS OF CONSCIOUSNESS [None]
  - MENINGITIS LISTERIA [None]
  - PULMONARY FIBROSIS [None]
